FAERS Safety Report 19002942 (Version 1)
Quarter: 2021Q1

REPORT INFORMATION
  Report Type: Spontaneous
  Country: AU (occurrence: AU)
  Receive Date: 20210312
  Receipt Date: 20210312
  Transmission Date: 20210420
  Serious: Yes (Other)
  Sender: FDA-Public Use
  Company Number: AU-MYLANLABS-2021M1014849

PATIENT
  Age: 71 Year
  Sex: Male

DRUGS (3)
  1. PERHEXILINE MALEATE [Suspect]
     Active Substance: PERHEXILINE MALEATE
     Indication: HYPERTROPHIC CARDIOMYOPATHY
     Dosage: 150 MILLIGRAM, QD...
     Route: 065
  2. AMIODARONE [Suspect]
     Active Substance: AMIODARONE
     Indication: ATRIAL FIBRILLATION
     Dosage: 200 MILLIGRAM, QD
  3. PERHEXILINE MALEATE [Suspect]
     Active Substance: PERHEXILINE MALEATE
     Indication: MYOCARDIAL ISCHAEMIA

REACTIONS (3)
  - Optic neuropathy [Recovering/Resolving]
  - Cornea verticillata [Unknown]
  - Idiopathic intracranial hypertension [Recovered/Resolved]
